FAERS Safety Report 5324419-X (Version None)
Quarter: 2007Q2

REPORT INFORMATION
  Report Type: 
  Country: None (occurrence: None)
  Receive Date: 20070514
  Receipt Date: 20070509
  Transmission Date: 20071010
  Serious: Yes (Hospitalization)
  Sender: FDA-Public Use
  Company Number: US-MERCK-0705USA00879

PATIENT
  Age: 59 Year
  Sex: Female

DRUGS (2)
  1. SINGULAIR [Suspect]
     Indication: ASTHMA
     Route: 048
     Dates: end: 20070419
  2. SINGULAIR [Suspect]
     Indication: HYPERSENSITIVITY
     Route: 048
     Dates: end: 20070419

REACTIONS (4)
  - ALLERGIC GRANULOMATOUS ANGIITIS [None]
  - RESPIRATORY DISTRESS [None]
  - SINUSITIS [None]
  - SKIN LESION [None]
